FAERS Safety Report 4453317-9 (Version None)
Quarter: 2004Q3

REPORT INFORMATION
  Report Type: 
  Country: None (occurrence: None)
  Receive Date: 20040920
  Receipt Date: 20040617
  Transmission Date: 20050211
  Serious: Yes (Hospitalization, Disabling)
  Sender: FDA-Public Use
  Company Number: US-MERCK-0406USA01754

PATIENT
  Age: 51 Year
  Sex: Female
  Weight: 73 kg

DRUGS (8)
  1. TYLENOL [Concomitant]
     Route: 065
  2. ASPIRIN [Concomitant]
     Route: 065
     Dates: start: 19940101
  3. COMBIPATCH [Concomitant]
     Indication: MENOPAUSE
     Route: 065
     Dates: start: 19990101, end: 20020617
  4. IBUPROFEN [Concomitant]
     Route: 065
     Dates: start: 19940101
  5. ADVIL [Concomitant]
     Route: 065
  6. MOTRIN [Concomitant]
     Route: 065
  7. MINOCYCLINE [Concomitant]
     Route: 065
  8. VIOXX [Suspect]
     Indication: ARTHRALGIA
     Route: 048
     Dates: start: 20010401, end: 20020617

REACTIONS (9)
  - BURSITIS [None]
  - CARDIAC ANEURYSM [None]
  - CORONARY ARTERY DISEASE [None]
  - HYPERTENSION [None]
  - MYOCARDIAL INFARCTION [None]
  - PALPITATIONS [None]
  - STRESS SYMPTOMS [None]
  - SUPRAVENTRICULAR EXTRASYSTOLES [None]
  - TENDONITIS [None]
